FAERS Safety Report 10147649 (Version 1)
Quarter: 2014Q2

REPORT INFORMATION
  Report Type: Spontaneous
  Country: US (occurrence: US)
  Receive Date: 20140501
  Receipt Date: 20140501
  Transmission Date: 20141212
  Serious: No
  Sender: FDA-Public Use
  Company Number: US-AMGEN-USASP2014025266

PATIENT
  Sex: 0

DRUGS (4)
  1. ENBREL [Suspect]
     Indication: PRODUCT USED FOR UNKNOWN INDICATION
     Dosage: UNK
     Route: 065
  2. MTX                                /00113801/ [Concomitant]
     Dosage: UNK
  3. PREDNISONE [Concomitant]
     Dosage: 5 MG, UNK
  4. XELJANZ [Concomitant]
     Dosage: UNK

REACTIONS (4)
  - Drug ineffective [Unknown]
  - Condition aggravated [Unknown]
  - Head discomfort [Unknown]
  - Upper respiratory tract infection [Unknown]
